FAERS Safety Report 6364951-3 (Version None)
Quarter: 2009Q3

REPORT INFORMATION
  Report Type: 
  Country: None (occurrence: None)
  Receive Date: 20090919
  Receipt Date: 20090730
  Transmission Date: 20100115
  Serious: No
  Sender: FDA-Public Use
  Company Number: US-ABBOTT-09P-163-0589073-00

PATIENT
  Sex: Male

DRUGS (2)
  1. HUMIRA [Suspect]
     Indication: PSORIASIS
     Dosage: 80MG; LOADING DOSE
     Route: 058
     Dates: start: 20090501, end: 20090501
  2. HUMIRA [Suspect]
     Route: 058
     Dates: start: 20090501, end: 20090729

REACTIONS (1)
  - HEADACHE [None]
